FAERS Safety Report 25820312 (Version 1)
Quarter: 2025Q3

REPORT INFORMATION
  Report Type: Spontaneous
  Country: US (occurrence: US)
  Receive Date: 20250919
  Receipt Date: 20250919
  Transmission Date: 20251021
  Serious: No
  Sender: AMGEN
  Company Number: US-AMGEN-USASP2025186322

PATIENT
  Age: 70 Year
  Sex: Male

DRUGS (1)
  1. KYPROLIS [Suspect]
     Active Substance: CARFILZOMIB
     Indication: Plasma cell myeloma recurrent
     Dosage: 56 MILLIGRAM/SQ. METER, Q2WK (ONCE EVERY OTHER WEEK)
     Route: 040

REACTIONS (1)
  - Phlebitis [Recovered/Resolved with Sequelae]
